FAERS Safety Report 10906896 (Version 1)
Quarter: 2015Q1

REPORT INFORMATION
  Report Type: Spontaneous
  Country: US (occurrence: None)
  Receive Date: 20150309
  Receipt Date: 20150309
  Transmission Date: 20150721
  Serious: Yes (Hospitalization)
  Sender: FDA-Public Use
  Company Number: 2771896

PATIENT
  Age: 60 Year
  Sex: Female

DRUGS (1)
  1. METHYLPREDNISOLONE. [Suspect]
     Active Substance: METHYLPREDNISOLONE
     Indication: OPTIC NEURITIS
     Dosage: 120 MG MILLIGRAMS INTRAVENOUS (NOT OTHERWISE SPECIFIED)
     Route: 042

REACTIONS (7)
  - Phaeochromocytoma [None]
  - Diabetic ketoacidosis [None]
  - Dyspnoea [None]
  - Atrial flutter [None]
  - Pulmonary embolism [None]
  - Adrenal mass [None]
  - Neoplasm malignant [None]
